FAERS Safety Report 9536468 (Version 2)
Quarter: 2013Q3

REPORT INFORMATION
  Report Type: Spontaneous
  Country: US (occurrence: US)
  Receive Date: 20130919
  Receipt Date: 20130919
  Transmission Date: 20140515
  Serious: Yes (Hospitalization)
  Sender: FDA-Public Use
  Company Number: US-JNJFOC-20120101712

PATIENT
  Sex: Female
  Weight: 88.45 kg

DRUGS (8)
  1. SIMPONI [Suspect]
     Indication: PSORIATIC ARTHROPATHY
     Route: 058
     Dates: start: 2011
  2. SIMPONI [Suspect]
     Indication: PSORIATIC ARTHROPATHY
     Route: 058
     Dates: start: 201307
  3. PREMARIN [Concomitant]
     Indication: HORMONE REPLACEMENT THERAPY
     Route: 065
     Dates: start: 1999
  4. TRICOR [Concomitant]
     Indication: BLOOD TRIGLYCERIDES ABNORMAL
     Route: 065
     Dates: start: 2007
  5. PREDNISONE [Concomitant]
     Indication: ARTHRITIS
     Route: 048
  6. METHOTREXATE [Concomitant]
     Indication: ARTHRITIS
     Route: 048
  7. NEXIUM [Concomitant]
     Indication: GASTROOESOPHAGEAL REFLUX DISEASE
     Route: 048
  8. CELEBREX [Concomitant]
     Indication: ARTHRITIS
     Route: 065

REACTIONS (7)
  - Herpes zoster [Recovered/Resolved]
  - Nasopharyngitis [Recovered/Resolved]
  - Accidental exposure to product [Recovered/Resolved]
  - Drug dose omission [Unknown]
  - Application site discolouration [Unknown]
  - Device malfunction [Not Recovered/Not Resolved]
  - Contraindication to vaccination [Unknown]
